FAERS Safety Report 6057355-4 (Version None)
Quarter: 2009Q1

REPORT INFORMATION
  Report Type: 
  Country: None (occurrence: None)
  Receive Date: 20090129
  Receipt Date: 20081216
  Transmission Date: 20090719
  Serious: No
  Sender: FDA-Public Use
  Company Number: A0760776A

PATIENT
  Age: 44 Year
  Sex: Male

DRUGS (4)
  1. WELLBUTRIN [Suspect]
     Indication: DRUG USE FOR UNKNOWN INDICATION
     Route: 048
     Dates: start: 20080601
  2. LUNESTA [Suspect]
     Indication: INSOMNIA
     Dosage: 3MG AT NIGHT
     Route: 048
     Dates: start: 20080101
  3. NEFAZODONE HCL [Suspect]
     Dates: start: 20080703
  4. ADDERALL 10 [Concomitant]

REACTIONS (2)
  - COGNITIVE DISORDER [None]
  - DIZZINESS [None]
